FAERS Safety Report 6534678-3 (Version None)
Quarter: 2010Q1

REPORT INFORMATION
  Report Type: 
  Country: None (occurrence: None)
  Receive Date: 20100112
  Receipt Date: 20091228
  Transmission Date: 20100710
  Serious: Yes (Hospitalization)
  Sender: FDA-Public Use
  Company Number: FR-GENENTECH-296640

PATIENT
  Sex: Male

DRUGS (6)
  1. RITUXIMAB [Suspect]
     Indication: MANTLE CELL LYMPHOMA
  2. ARACYTINE [Suspect]
     Indication: MANTLE CELL LYMPHOMA
     Dosage: FORM: POWDER AND SOLVENT, CYCLE 1, TDD: 2G/M2, GIVEN ON DAY 1 AND 2 OF CYCLE 1.
     Route: 042
     Dates: start: 20091201
  3. CISPLATIN [Suspect]
     Indication: MANTLE CELL LYMPHOMA
     Dosage: CYCLE 1, RECEIVED ON DAY 1 OF CYCLE 1.
     Route: 042
     Dates: start: 20091201
  4. DEXAMETHASONE [Suspect]
     Indication: MANTLE CELL LYMPHOMA
     Dosage: DAY 1 TO 4 OF CYCLE 1.
     Route: 042
     Dates: start: 20091201
  5. NEULASTIM [Concomitant]
     Indication: MANTLE CELL LYMPHOMA
     Dosage: GIVEN ON DAY 5 OF CYCLE 1.
     Route: 042
     Dates: start: 20091205
  6. NOVORAPID [Concomitant]
     Indication: DIABETES MELLITUS
     Dosage: UNK
     Route: 058

REACTIONS (3)
  - FEBRILE NEUTROPENIA [None]
  - POSTOPERATIVE WOUND INFECTION [None]
  - THROMBOCYTOPENIA [None]
